FAERS Safety Report 5030846-0 (Version None)
Quarter: 2006Q2

REPORT INFORMATION
  Report Type: 
  Country: None (occurrence: None)
  Receive Date: 20060619
  Receipt Date: 20060602
  Transmission Date: 20061013
  Serious: Yes (Hospitalization)
  Sender: FDA-Public Use
  Company Number: 8017285

PATIENT
  Age: 7 Year
  Sex: Female

DRUGS (3)
  1. KEPPRA [Suspect]
     Indication: EPILEPSY
  2. KEPPRA [Suspect]
     Indication: INFANTILE SPASMS
  3. PHENOBARBITAL TAB [Suspect]

REACTIONS (2)
  - COMA [None]
  - OVERDOSE [None]
